FAERS Safety Report 25241806 (Version 1)
Quarter: 2025Q2

REPORT INFORMATION
  Report Type: Spontaneous
  Country: CA (occurrence: CA)
  Receive Date: 20250428
  Receipt Date: 20250428
  Transmission Date: 20250717
  Serious: Yes (Life-Threatening, Hospitalization)
  Sender: AMGEN
  Company Number: CA-AMGEN-CANSP2025081611

PATIENT
  Age: 72 Year
  Sex: Female

DRUGS (1)
  1. KYPROLIS [Suspect]
     Active Substance: CARFILZOMIB
     Indication: Product used for unknown indication
     Route: 040

REACTIONS (6)
  - Tricuspid valve incompetence [Unknown]
  - Left ventricular dysfunction [Unknown]
  - Pulmonary arterial pressure increased [Unknown]
  - Right ventricular enlargement [Unknown]
  - Right ventricular systolic pressure [Unknown]
  - Cardiomyopathy [Unknown]
